FAERS Safety Report 7078849-9 (Version None)
Quarter: 2010Q4

REPORT INFORMATION
  Report Type: 
  Country: None (occurrence: None)
  Receive Date: 20101102
  Receipt Date: 20101026
  Transmission Date: 20110411
  Serious: Yes (Hospitalization)
  Sender: FDA-Public Use
  Company Number: US-SANOFI-AVENTIS-2010SA063964

PATIENT
  Age: 57 Year
  Sex: Female
  Weight: 67.13 kg

DRUGS (2)
  1. NASACORT AQ [Suspect]
     Indication: SINUSITIS
     Route: 045
     Dates: start: 20101006, end: 20101007
  2. ANTIBIOTICS [Concomitant]

REACTIONS (4)
  - CHEST DISCOMFORT [None]
  - DYSPNOEA [None]
  - OFF LABEL USE [None]
  - PALPITATIONS [None]
